FAERS Safety Report 11497172 (Version 3)
Quarter: 2020Q3

REPORT INFORMATION
  Report Type: Spontaneous
  Country: US (occurrence: US)
  Receive Date: 20150911
  Receipt Date: 20200713
  Transmission Date: 20201102
  Serious: Yes (Hospitalization)
  Sender: FDA-Public Use
  Company Number: US-JNJFOC-20150905435

PATIENT
  Age: 53 Year
  Sex: Female

DRUGS (1)
  1. XARELTO [Suspect]
     Active Substance: RIVAROXABAN
     Indication: DEEP VEIN THROMBOSIS
     Dosage: 20MG/15MG
     Route: 048
     Dates: start: 201308, end: 201309

REACTIONS (1)
  - Haemorrhage intracranial [Unknown]

NARRATIVE: CASE EVENT DATE: 20130907
